FAERS Safety Report 5398307-7 (Version None)
Quarter: 2007Q3

REPORT INFORMATION
  Report Type: 
  Country: None (occurrence: None)
  Receive Date: 20070724
  Receipt Date: 20070709
  Transmission Date: 20080115
  Serious: Yes (Hospitalization)
  Sender: FDA-Public Use
  Company Number: 2007001256

PATIENT
  Age: 59 Year
  Sex: Female
  Weight: 51.2565 kg

DRUGS (3)
  1. ERLOTINIB  (TABLET) (ERLOTINIB) [Suspect]
     Indication: PANCREATIC CARCINOMA
     Dosage: 100 MG (QD), ORAL
     Route: 048
     Dates: start: 20070208, end: 20070614
  2. GEMZAR [Concomitant]
  3. LOVENOX [Concomitant]

REACTIONS (1)
  - SPONTANEOUS HAEMATOMA [None]
